FAERS Safety Report 20249108 (Version 1)
Quarter: 2021Q4

REPORT INFORMATION
  Report Type: Spontaneous
  Country: ES (occurrence: ES)
  Receive Date: 20211229
  Receipt Date: 20211229
  Transmission Date: 20220303
  Serious: Yes (Other)
  Sender: FDA-Public Use
  Company Number: ES-MLMSERVICE-20211214-3269627-2

PATIENT
  Age: 39 Year
  Sex: Female

DRUGS (2)
  1. OMEPRAZOLE [Suspect]
     Active Substance: OMEPRAZOLE
     Indication: Product used for unknown indication
  2. OMEPRAZOLE [Suspect]
     Active Substance: OMEPRAZOLE
     Indication: Allergy test

REACTIONS (4)
  - Anaphylactic reaction [Recovering/Resolving]
  - Angioedema [Recovering/Resolving]
  - Drug hypersensitivity [Recovering/Resolving]
  - Discomfort [Recovering/Resolving]
